FAERS Safety Report 10521859 (Version 1)
Quarter: 2014Q4

REPORT INFORMATION
  Report Type: Spontaneous
  Country: US (occurrence: None)
  Receive Date: 20141014
  Receipt Date: 20141014
  Transmission Date: 20150528
  Serious: Yes (Hospitalization, Other)
  Sender: FDA-Public Use
  Company Number: 201410003

PATIENT
  Age: 51 Year
  Sex: Male

DRUGS (1)
  1. TESTOPEL [Suspect]
     Active Substance: TESTOSTERONE
     Dosage: PATIENT HAD 750MG IMPLANTED
     Route: 058
     Dates: start: 20111004

REACTIONS (6)
  - Unevaluable event [None]
  - Economic problem [None]
  - Overdose [None]
  - Pulmonary embolism [None]
  - Deep vein thrombosis [None]
  - Injury [None]

NARRATIVE: CASE EVENT DATE: 20120126
